FAERS Safety Report 5049976-2 (Version None)
Quarter: 2006Q3

REPORT INFORMATION
  Report Type: 
  Country: None (occurrence: None)
  Receive Date: 20060707
  Receipt Date: 20060623
  Transmission Date: 20061208
  Serious: Yes (Death)
  Sender: FDA-Public Use
  Company Number: 2006S1005228

PATIENT
  Age: 45 Year
  Sex: Male

DRUGS (5)
  1. CLOZAPINE [Suspect]
     Indication: AFFECTIVE DISORDER
     Dosage: 100 MG;QAM;ORAL     500 MG;HS;ORAL
     Route: 048
     Dates: start: 19991201
  2. CLOZAPINE [Suspect]
     Indication: PSYCHOTIC DISORDER
     Dosage: 100 MG;QAM;ORAL     500 MG;HS;ORAL
     Route: 048
     Dates: start: 19991201
  3. CLOZAPINE [Suspect]
     Indication: TRAUMATIC BRAIN INJURY
     Dosage: 100 MG;QAM;ORAL     500 MG;HS;ORAL
     Route: 048
     Dates: start: 19991201
  4. RISPERIDONE [Concomitant]
  5. FLUOXETINE [Concomitant]

REACTIONS (2)
  - CONVULSION [None]
  - MYOCARDIAL INFARCTION [None]
